FAERS Safety Report 24783048 (Version 1)
Quarter: 2024Q4

REPORT INFORMATION
  Report Type: Spontaneous
  Country: CN (occurrence: CN)
  Receive Date: 20241227
  Receipt Date: 20241227
  Transmission Date: 20250115
  Serious: Yes (Other)
  Sender: PAREXEL
  Company Number: CN-SHANGHAI JUNSHI BIOSCIENCES CO., LTD.-CN2024012446

PATIENT

DRUGS (3)
  1. TORIPALIMAB [Suspect]
     Active Substance: TORIPALIMAB
     Indication: Undifferentiated nasopharyngeal carcinoma
     Dosage: 240 MG, EVERY 21 DAYS, PUMP INJECTION
     Route: 041
     Dates: start: 20241129, end: 20241129
  2. GEMCITABINE HYDROCHLORIDE [Suspect]
     Active Substance: GEMCITABINE HYDROCHLORIDE
     Indication: Undifferentiated nasopharyngeal carcinoma
     Dosage: 1.4 G (1000 MG/M^2; D1, D8), EVERY 21 DAYS AS A CYCLE, PUMP INJECTION
     Route: 041
     Dates: start: 20241129, end: 20241129
  3. CISPLATIN [Suspect]
     Active Substance: CISPLATIN
     Indication: Undifferentiated nasopharyngeal carcinoma
     Dosage: 120 MG (D1-D2, DIVIDED INTO 2 DAYS OF ADMINISTRATION), EVERY 21 DAYS AS A CYCLE, PUMP INJECTION
     Route: 041
     Dates: start: 20241129, end: 20241129

REACTIONS (1)
  - Myelosuppression [Recovering/Resolving]

NARRATIVE: CASE EVENT DATE: 20241206
